FAERS Safety Report 11703449 (Version 1)
Quarter: 2015Q4

REPORT INFORMATION
  Report Type: Spontaneous
  Country: US (occurrence: US)
  Receive Date: 20151105
  Receipt Date: 20151105
  Transmission Date: 20160304
  Serious: No
  Sender: FDA-Public Use
  Company Number: US-ANACOR-2015ANA00119

PATIENT
  Age: 54 Year
  Sex: Female

DRUGS (2)
  1. KERYDIN [Suspect]
     Active Substance: TAVABOROLE
     Dosage: UNK
     Dates: start: 201508
  2. KERYDIN [Suspect]
     Active Substance: TAVABOROLE
     Dosage: UNK
     Dates: start: 201504, end: 201508

REACTIONS (2)
  - Application site vesicles [Unknown]
  - Application site haemorrhage [Unknown]

NARRATIVE: CASE EVENT DATE: 201508
